FAERS Safety Report 6336807-3 (Version None)
Quarter: 2009Q3

REPORT INFORMATION
  Report Type: 
  Country: None (occurrence: None)
  Receive Date: 20090901
  Receipt Date: 20090821
  Transmission Date: 20100115
  Serious: Yes (Hospitalization, Other)
  Sender: FDA-Public Use
  Company Number: US-ELI_LILLY_AND_COMPANY-US200906001673

PATIENT
  Sex: Male
  Weight: 123.36 kg

DRUGS (11)
  1. BYETTA [Suspect]
     Indication: TYPE 2 DIABETES MELLITUS
     Dosage: 5 UG, 2/D
     Route: 058
     Dates: start: 20060101
  2. BYETTA [Suspect]
     Dosage: 10 UG, 2/D
     Route: 058
     Dates: start: 20060101
  3. METFORMIN HCL [Concomitant]
     Indication: TYPE 2 DIABETES MELLITUS
     Dosage: 500 MG, 2/D
  4. CARDIZEM CD [Concomitant]
     Indication: BLOOD PRESSURE
     Dosage: 240 MG, DAILY (1/D)
  5. KLOR-CON [Concomitant]
     Indication: BLOOD POTASSIUM
     Dosage: 10 MEQ, DAILY (1/D)
  6. ZETIA [Concomitant]
     Indication: BLOOD CHOLESTEROL
     Dosage: 10 MG, DAILY (1/D)
  7. ASPIRIN [Concomitant]
     Dosage: 81 MG, DAILY (1/D)
  8. XANAX [Concomitant]
     Dosage: 1 MG, OTHER
  9. ABILIFY [Concomitant]
     Indication: BIPOLAR DISORDER
     Dosage: 10 MG, EACH EVENING
  10. LORAZEPAM [Concomitant]
     Dosage: 1 MG, EACH EVENING
  11. DESVENLAFAXINE [Concomitant]
     Dosage: 15 MG, EACH MORNING

REACTIONS (8)
  - ARTHROSCOPIC SURGERY [None]
  - BIPOLAR DISORDER [None]
  - CHEST DISCOMFORT [None]
  - DEPRESSION [None]
  - DEVICE FAILURE [None]
  - HYPERTENSION [None]
  - JOINT INJURY [None]
  - STRESS [None]
